FAERS Safety Report 6416718-5 (Version None)
Quarter: 2009Q4

REPORT INFORMATION
  Report Type: 
  Country: None (occurrence: None)
  Receive Date: 20091027
  Receipt Date: 20091019
  Transmission Date: 20100525
  Serious: Yes (Hospitalization, Other)
  Sender: FDA-Public Use
  Company Number: DE-ABBOTT-09P-062-0586101-00

PATIENT
  Sex: Female
  Weight: 40 kg

DRUGS (2)
  1. HUMIRA [Suspect]
     Indication: CROHN'S DISEASE
     Dates: start: 20080611
  2. GLUCOCORTICOID [Concomitant]
     Indication: CROHN'S DISEASE

REACTIONS (3)
  - COLONIC STENOSIS [None]
  - CROHN'S DISEASE [None]
  - ILEAL STENOSIS [None]
